FAERS Safety Report 4279086-3 (Version None)
Quarter: 2004Q1

REPORT INFORMATION
  Report Type: 
  Country: None (occurrence: None)
  Receive Date: 20040126
  Receipt Date: 20021127
  Transmission Date: 20041129
  Serious: Yes (Hospitalization, Disabling)
  Sender: FDA-Public Use
  Company Number: WAES 0212USA00306

PATIENT
  Age: 62 Year
  Sex: Male

DRUGS (90)
  1. CARDIZEM [Concomitant]
     Dates: start: 20010226
  2. CARDIZEM [Concomitant]
     Route: 048
  3. CARDIZEM [Concomitant]
     Dates: start: 19961218
  4. CARDIZEM [Concomitant]
     Dates: start: 19970820
  5. CARDIZEM [Concomitant]
  6. DILTIAZEM HYDROCHLORIDE [Concomitant]
     Dates: start: 19970820
  7. CARDURA [Concomitant]
     Dates: start: 19940626, end: 19941129
  8. CARDURA [Concomitant]
     Dates: start: 19991130
  9. CARDURA [Concomitant]
     Dates: start: 19980509
  10. ERYTHROMYCIN [Concomitant]
     Dates: start: 19981104
  11. ERYTHROMYCIN [Concomitant]
     Dates: start: 19991227
  12. ERYTHROMYCIN [Concomitant]
     Dates: start: 20000106
  13. FELODIPINE [Concomitant]
  14. ALLEGRA-D [Concomitant]
     Route: 048
     Dates: start: 20010831
  15. NEURONTIN [Concomitant]
     Dates: start: 20000622
  16. GEMFIBROZIL [Concomitant]
     Dates: start: 19990401
  17. MEVACOR [Concomitant]
     Dates: start: 19990129
  18. MEVACOR [Concomitant]
     Route: 048
     Dates: start: 19980929
  19. GLUCOPHAGE [Concomitant]
     Dates: start: 20000101, end: 20020111
  20. GLUCOPHAGE [Concomitant]
     Dates: start: 20020101
  21. ROBAXIN [Concomitant]
     Route: 048
     Dates: start: 19980628
  22. SOLU-MEDROL [Concomitant]
     Dates: start: 19990119
  23. SOLU-MEDROL [Concomitant]
     Route: 030
     Dates: start: 20010831
  24. TOPROL-XL [Concomitant]
  25. LOPRESSOR [Concomitant]
     Dates: start: 19990510
  26. NADOLOL [Concomitant]
     Dates: start: 20000101, end: 20000726
  27. NAPROXEN [Concomitant]
  28. NIACIN [Concomitant]
     Dates: start: 19980724, end: 19980911
  29. NIACIN [Concomitant]
     Dates: start: 19980717, end: 19980723
  30. NITROGLYCERIN [Concomitant]
  31. PRILOSEC [Concomitant]
     Dates: start: 19990113
  32. QUINAMM [Concomitant]
     Dates: start: 19980223
  33. RADIOGRAPHIC CONTRAST MEDIUM (UNSPECIFIED) [Suspect]
     Dates: start: 20010109, end: 20010109
  34. RANITIDINE-BC [Concomitant]
     Dates: start: 19990510
  35. HYCODAN [Concomitant]
     Dates: start: 19991227
  36. HYCODAN [Concomitant]
     Dates: start: 19981104
  37. DIOVAN HCT [Concomitant]
  38. DIOVAN HCT [Concomitant]
     Dates: start: 19991109
  39. LINCOCIN [Concomitant]
     Dates: start: 19981104
  40. LINCOCIN [Concomitant]
     Dates: start: 19991227
  41. LINCOCIN [Concomitant]
     Dates: start: 20000106
  42. LINCOCIN [Concomitant]
     Dates: start: 20000830
  43. LINCOCIN [Concomitant]
     Dates: start: 20001009
  44. LORAZEPAM [Concomitant]
     Dates: start: 20000718
  45. MEVACOR [Concomitant]
     Dates: start: 19990113
  46. CORDARONE [Concomitant]
     Dates: start: 19991124, end: 19991201
  47. CORDARONE [Concomitant]
     Dates: start: 19991109, end: 19991101
  48. CORDARONE [Concomitant]
     Dates: start: 20010228
  49. CORDARONE [Concomitant]
     Dates: start: 20010228
  50. CORDARONE [Concomitant]
     Dates: start: 20000101
  51. CORDARONE [Concomitant]
     Dates: start: 20000101
  52. CORDARONE [Concomitant]
     Dates: start: 20010418
  53. NORVASC [Concomitant]
     Route: 048
  54. LOTREL [Concomitant]
  55. AMOXIL [Concomitant]
     Dates: start: 20001204, end: 20001214
  56. AMOXIL [Concomitant]
     Dates: start: 20010228
  57. AMOXIL [Concomitant]
     Dates: start: 20001220, end: 20001230
  58. AMOXIL [Concomitant]
     Dates: start: 20020107
  59. ASPIRIN [Concomitant]
  60. LIPITOR [Concomitant]
  61. LIPITOR [Concomitant]
     Route: 048
  62. Z-PAK [Concomitant]
     Dates: start: 20011213
  63. CORTISPORIN OINTMENT [Concomitant]
     Route: 001
     Dates: start: 19980729
  64. CORTISPORIN OINTMENT [Concomitant]
     Route: 001
     Dates: start: 19990119
  65. CORTISPORIN OINTMENT [Concomitant]
     Route: 001
     Dates: start: 19990907
  66. VANCENASE [Concomitant]
     Route: 055
     Dates: start: 19990119
  67. KEFZOL [Concomitant]
     Dates: start: 19980729
  68. KEFZOL [Concomitant]
     Dates: start: 19981201
  69. CEFZIL [Concomitant]
     Route: 048
  70. CEFTIN [Concomitant]
     Dates: start: 19990919
  71. KEFLEX [Concomitant]
     Dates: start: 19980729
  72. KEFLEX [Concomitant]
     Dates: start: 19981201
  73. KEFLEX [Concomitant]
     Dates: start: 20000801
  74. KEFLEX [Concomitant]
     Dates: start: 20000830
  75. ZYRTEC [Concomitant]
  76. CIMETIDINE [Concomitant]
     Dates: start: 19980417
  77. MYCELEX [Concomitant]
     Dates: start: 20010909
  78. LANOXIN [Concomitant]
     Dates: end: 19990101
  79. DIGOXIN [Concomitant]
     Dates: start: 19980122
  80. CARDIZEM [Concomitant]
     Dates: start: 20000726
  81. ZANTAC [Concomitant]
  82. ZOCOR [Suspect]
     Route: 048
     Dates: start: 19980519
  83. ZOCOR [Suspect]
     Route: 048
     Dates: start: 19980910
  84. ZOCOR [Suspect]
     Route: 048
     Dates: start: 20010926, end: 20020111
  85. ZOCOR [Suspect]
     Route: 048
     Dates: start: 19990101, end: 20010926
  86. TETANUS TOXOID [Concomitant]
     Route: 030
     Dates: start: 19980417
  87. TRI-NASAL [Concomitant]
     Dates: start: 20011213
  88. DIOVAN [Concomitant]
  89. DIOVAN [Concomitant]
     Dates: start: 20010725
  90. COUMADIN [Concomitant]
     Route: 048
     Dates: start: 20001108, end: 20010926

REACTIONS (35)
  - ADENOMA BENIGN [None]
  - AORTIC VALVE SCLEROSIS [None]
  - ATRIAL FIBRILLATION [None]
  - ATRIAL FLUTTER [None]
  - BLADDER DISORDER [None]
  - BRADYCARDIA [None]
  - BRONCHITIS [None]
  - CANDIDIASIS [None]
  - CAROTID ARTERY DISEASE [None]
  - COUGH [None]
  - DIABETES MELLITUS [None]
  - DIABETIC RETINOPATHY [None]
  - DIZZINESS [None]
  - DYSPNOEA [None]
  - EAR DISORDER [None]
  - FLUSHING [None]
  - GASTROOESOPHAGEAL REFLUX DISEASE [None]
  - GROIN PAIN [None]
  - INTERVERTEBRAL DISC DISPLACEMENT [None]
  - MITRAL VALVE INCOMPETENCE [None]
  - MUSCLE CRAMP [None]
  - MYALGIA [None]
  - OTITIS EXTERNA [None]
  - PELVIC PAIN [None]
  - PHARYNGITIS [None]
  - PIGMENTED NAEVUS [None]
  - RENAL FAILURE ACUTE [None]
  - RHABDOMYOLYSIS [None]
  - RHINITIS ALLERGIC [None]
  - SENSATION OF FOREIGN BODY [None]
  - SINUSITIS [None]
  - SWEAT DISCOLOURATION [None]
  - TONGUE DISORDER [None]
  - TRICUSPID VALVE INCOMPETENCE [None]
  - UPPER RESPIRATORY TRACT INFECTION [None]
